FAERS Safety Report 5593656-1 (Version None)
Quarter: 2008Q1

REPORT INFORMATION
  Report Type: 
  Country: None (occurrence: None)
  Receive Date: 20080116
  Receipt Date: 20071008
  Transmission Date: 20080703
  Serious: No
  Sender: FDA-Public Use
  Company Number: US-ABBOTT-07P-163-0420218-00

PATIENT
  Sex: Male
  Weight: 15.436 kg

DRUGS (2)
  1. CLARITHROMYCIN ORAL SUSPENSION 125MG/5ML [Suspect]
     Indication: PHARYNGITIS STREPTOCOCCAL
     Route: 048
     Dates: start: 20071004
  2. CLARITHROMYCIN ORAL SUSPENSION 125MG/5ML [Suspect]
     Indication: EAR INFECTION

REACTIONS (2)
  - INSOMNIA [None]
  - IRRITABILITY [None]
